FAERS Safety Report 4647410-5 (Version None)
Quarter: 2005Q2

REPORT INFORMATION
  Report Type: 
  Country: None (occurrence: None)
  Receive Date: 20050427
  Receipt Date: 20050427
  Transmission Date: 20051028
  Serious: Yes (Other)
  Sender: FDA-Public Use
  Company Number: None

PATIENT
  Age: 25 Year
  Sex: Male
  Weight: 113.3993 kg

DRUGS (2)
  1. NAPROXEN [Suspect]
     Indication: BACK PAIN
     Dosage: 500 MG X 1 DOSE, ORALLY   1 DOSE
     Route: 048
     Dates: start: 20041207
  2. EFFEXOR [Concomitant]

REACTIONS (4)
  - ANAPHYLACTIC SHOCK [None]
  - SIMILAR REACTION ON PREVIOUS EXPOSURE TO DRUG [None]
  - STEVENS-JOHNSON SYNDROME [None]
  - VISION BLURRED [None]
